FAERS Safety Report 18376925 (Version 3)
Quarter: 2020Q4

REPORT INFORMATION
  Report Type: Report from Study
  Country: US (occurrence: US)
  Receive Date: 20201013
  Receipt Date: 20201215
  Transmission Date: 20210114
  Serious: No
  Sender: FDA-Public Use
  Company Number: US-B.I. PHARMACEUTICALS,INC./RIDGEFIELD-2020-MR-041462

PATIENT
  Sex: Female

DRUGS (2)
  1. OFEV [Suspect]
     Active Substance: NINTEDANIB
     Dosage: ONE CAPSULE DAILY
     Route: 048
  2. OFEV [Suspect]
     Active Substance: NINTEDANIB
     Indication: IDIOPATHIC PULMONARY FIBROSIS
     Dosage: OFEV DOSE 300MG DAILY
     Route: 048
     Dates: start: 20201006

REACTIONS (12)
  - Oxygen consumption increased [Unknown]
  - Diabetes mellitus [Unknown]
  - Vomiting [Unknown]
  - Gastrooesophageal reflux disease [Unknown]
  - Cholelithiasis [Unknown]
  - Asthenia [Unknown]
  - Abdominal discomfort [Unknown]
  - Dyspnoea [Unknown]
  - Nausea [Unknown]
  - Abdominal pain upper [Unknown]
  - Ill-defined disorder [Unknown]
  - Decreased appetite [Unknown]
